FAERS Safety Report 7600329-X (Version None)
Quarter: 2011Q2

REPORT INFORMATION
  Report Type: 
  Country: None (occurrence: None)
  Receive Date: 20110629
  Receipt Date: 20110623
  Transmission Date: 20111010
  Serious: Yes (Hospitalization)
  Sender: FDA-Public Use
  Company Number: DSU-2011-04708

PATIENT
  Age: 78 Year
  Sex: Female
  Weight: 67.1324 kg

DRUGS (7)
  1. PROTONIX [Concomitant]
  2. COUMADIN [Concomitant]
  3. LOPRESSOR (METOPROLOL TARTRATE) (METOPROLOL TARTRATE) [Concomitant]
  4. ATIVAN [Concomitant]
  5. WELCHOL [Suspect]
     Indication: BLOOD CHOLESTEROL INCREASED
     Dosage: 3750 MG (3750 MG, QD), PER ORAL
     Route: 048
     Dates: start: 20000501, end: 20110623
  6. ASPIRIN [Concomitant]
  7. ZOLOFT (SERTRALINE) (SERTRALINE) [Concomitant]

REACTIONS (3)
  - CARDIAC OPERATION [None]
  - PULMONARY EMBOLISM [None]
  - DYSPHAGIA [None]
